FAERS Safety Report 24038617 (Version 2)
Quarter: 2024Q3

REPORT INFORMATION
  Report Type: Spontaneous
  Country: US (occurrence: US)
  Receive Date: 20240702
  Receipt Date: 20240909
  Transmission Date: 20241016
  Serious: Yes (Death, Other)
  Sender: HIKMA
  Company Number: HIKM2404985

PATIENT
  Age: 64 Year
  Sex: Female

DRUGS (1)
  1. DEXAMETHASONE [Suspect]
     Active Substance: DEXAMETHASONE
     Indication: Plasma cell myeloma
     Dosage: UNK UNK, WEEKLY
     Route: 048
     Dates: start: 2024

REACTIONS (13)
  - Coma [Recovered/Resolved]
  - Nervous system disorder [Recovered/Resolved]
  - Vitamin B1 deficiency [Recovered/Resolved]
  - Mental disorder [Recovered/Resolved]
  - Confusional state [Recovered/Resolved]
  - Psychomotor hyperactivity [Recovered/Resolved]
  - Tremor [Recovered/Resolved]
  - Echolalia [Recovered/Resolved]
  - Decreased eye contact [Recovered/Resolved]
  - Feeding disorder [Recovered/Resolved]
  - Feeling abnormal [Recovered/Resolved]
  - Plasma cell myeloma [Recovered/Resolved]
  - Death [Fatal]

NARRATIVE: CASE EVENT DATE: 20201110
